FAERS Safety Report 13982635 (Version 1)
Quarter: 2017Q3

REPORT INFORMATION
  Report Type: Spontaneous
  Country: US (occurrence: US)
  Receive Date: 20170918
  Receipt Date: 20170918
  Transmission Date: 20171128
  Serious: Yes (Hospitalization)
  Sender: FDA-Public Use
  Company Number: US-LEXICON PHARMACEUTICALS, INC-17-1606-00851

PATIENT
  Age: 73 Year
  Sex: Male

DRUGS (1)
  1. TELOTRISTAT ETHYL [Suspect]
     Active Substance: TELOTRISTAT ETHYL
     Indication: CARCINOID TUMOUR
     Route: 048
     Dates: start: 2017

REACTIONS (4)
  - Diarrhoea [Unknown]
  - Therapeutic embolisation [Not Recovered/Not Resolved]
  - Laser therapy [Unknown]
  - Flatulence [Unknown]

NARRATIVE: CASE EVENT DATE: 2017
